FAERS Safety Report 19745461 (Version 1)
Quarter: 2021Q3

REPORT INFORMATION
  Report Type: Spontaneous
  Country: CN (occurrence: CN)
  Receive Date: 20210825
  Receipt Date: 20210825
  Transmission Date: 20211014
  Serious: Yes (Hospitalization, Other)
  Sender: FDA-Public Use
  Company Number: CN-PFIZER INC-202101058661

PATIENT
  Age: 46 Year
  Sex: Male
  Weight: 72 kg

DRUGS (3)
  1. DIFLUCAN [Suspect]
     Active Substance: FLUCONAZOLE
     Indication: CRYPTOCOCCOSIS
     Dosage: 200 MG, 2X/DAY
     Route: 041
     Dates: start: 20210101, end: 20210315
  2. FENG KE SONG [Suspect]
     Active Substance: AMPHOTERICIN B
     Indication: CRYPTOCOCCOSIS
     Dosage: 20 MG, 1X/DAY
     Route: 041
     Dates: start: 20210101, end: 20210411
  3. FLUCYTOSINE. [Suspect]
     Active Substance: FLUCYTOSINE
     Indication: CRYPTOCOCCOSIS
     Dosage: 1.5 G, 4X/DAY
     Route: 048
     Dates: start: 20210101, end: 20210411

REACTIONS (2)
  - Glomerular filtration rate decreased [Recovering/Resolving]
  - Renal failure [Recovering/Resolving]

NARRATIVE: CASE EVENT DATE: 20210118
